FAERS Safety Report 10952776 (Version 2)
Quarter: 2015Q1

REPORT INFORMATION
  Report Type: Spontaneous
  Country: US (occurrence: None)
  Receive Date: 20150323
  Receipt Date: 20150330
  Transmission Date: 20150721
  Serious: Yes (Other)
  Sender: FDA-Public Use
  Company Number: AMAG201500191

PATIENT
  Age: 29 Year
  Sex: Female
  Weight: 91.2 kg

DRUGS (4)
  1. VITAMIN (VITAMINS NOS) [Concomitant]
  2. PRENATAL VITAMINS (ASCORBIC ACID, BIOTIN, MINERALS NOS, NICOTINIC ACID, RETINOL, TOCOPHEROL, VITAMIN B NOS, VITAMIN D NOS)? [Concomitant]
  3. ALBUTEROL INHALER (SALBUTAMOL) [Concomitant]
  4. MAKENA [Suspect]
     Active Substance: HYDROXYPROGESTERONE CAPROATE
     Indication: PREMATURE DELIVERY
     Route: 030
     Dates: start: 20150306

REACTIONS (5)
  - Euphoric mood [None]
  - Gait disturbance [None]
  - Somnolence [None]
  - Hypoaesthesia [None]
  - Maternal exposure during pregnancy [None]

NARRATIVE: CASE EVENT DATE: 20150306
